FAERS Safety Report 4622322-1 (Version None)
Quarter: 2005Q1

REPORT INFORMATION
  Report Type: 
  Country: None (occurrence: None)
  Receive Date: 20050330
  Receipt Date: 20050222
  Transmission Date: 20050727
  Serious: Yes (Hospitalization)
  Sender: FDA-Public Use
  Company Number: JP-BRISTOL-MYERS SQUIBB COMPANY-12878336

PATIENT
  Age: 72 Year
  Sex: Male

DRUGS (10)
  1. GATIFLO TABS 100 MG [Suspect]
     Indication: UPPER RESPIRATORY TRACT INFLAMMATION
     Route: 048
     Dates: start: 20050214, end: 20050216
  2. HOKUNALIN [Suspect]
     Indication: COUGH
     Route: 062
     Dates: start: 20050214, end: 20050216
  3. COLDRIN [Suspect]
     Indication: UPPER RESPIRATORY TRACT INFLAMMATION
     Route: 048
     Dates: start: 20050210, end: 20050214
  4. MUCOSOLVAN [Concomitant]
     Route: 048
     Dates: start: 20050214, end: 20050216
  5. MUCODYNE [Concomitant]
     Route: 048
     Dates: start: 20050212, end: 20050216
  6. MIYA-BM [Concomitant]
     Route: 048
     Dates: start: 20050212, end: 20050214
  7. TAMIFLU [Concomitant]
     Route: 048
     Dates: start: 20050210, end: 20050214
  8. CONIEL [Concomitant]
     Route: 048
     Dates: start: 20030715
  9. LENDORM [Concomitant]
     Route: 048
     Dates: start: 20030715
  10. ZITHROMAC [Concomitant]
     Route: 048
     Dates: start: 20040210, end: 20040212

REACTIONS (2)
  - DYSKINESIA [None]
  - TREMOR [None]
